FAERS Safety Report 25058902 (Version 1)
Quarter: 2025Q1

REPORT INFORMATION
  Report Type: Spontaneous
  Country: None (occurrence: CA)
  Receive Date: 20250310
  Receipt Date: 20250310
  Transmission Date: 20250409
  Serious: Yes (Other)
  Sender: MYLAN
  Company Number: CA-MYLANLABS-2025M1020355

PATIENT
  Age: 76 Year
  Sex: Female

DRUGS (16)
  1. REVATIO [Suspect]
     Active Substance: SILDENAFIL CITRATE
     Indication: Pulmonary arterial hypertension
     Dosage: 20 MILLIGRAM, TID(THREE TIMES A DAY)
     Dates: start: 20241123
  2. REVATIO [Suspect]
     Active Substance: SILDENAFIL CITRATE
     Dosage: 20 MILLIGRAM, TID(THREE TIMES A DAY)
     Route: 048
     Dates: start: 20241123
  3. REVATIO [Suspect]
     Active Substance: SILDENAFIL CITRATE
     Dosage: 20 MILLIGRAM, TID(THREE TIMES A DAY)
     Route: 048
     Dates: start: 20241123
  4. REVATIO [Suspect]
     Active Substance: SILDENAFIL CITRATE
     Dosage: 20 MILLIGRAM, TID(THREE TIMES A DAY)
     Dates: start: 20241123
  5. DEXILANT [Concomitant]
     Active Substance: DEXLANSOPRAZOLE
  6. DEXILANT [Concomitant]
     Active Substance: DEXLANSOPRAZOLE
     Route: 065
  7. DEXILANT [Concomitant]
     Active Substance: DEXLANSOPRAZOLE
     Route: 065
  8. DEXILANT [Concomitant]
     Active Substance: DEXLANSOPRAZOLE
  9. IRBESARTAN [Concomitant]
     Active Substance: IRBESARTAN
  10. IRBESARTAN [Concomitant]
     Active Substance: IRBESARTAN
     Route: 065
  11. IRBESARTAN [Concomitant]
     Active Substance: IRBESARTAN
     Route: 065
  12. IRBESARTAN [Concomitant]
     Active Substance: IRBESARTAN
  13. NEXIUM [Concomitant]
     Active Substance: ESOMEPRAZOLE MAGNESIUM
  14. NEXIUM [Concomitant]
     Active Substance: ESOMEPRAZOLE MAGNESIUM
     Route: 065
  15. NEXIUM [Concomitant]
     Active Substance: ESOMEPRAZOLE MAGNESIUM
     Route: 065
  16. NEXIUM [Concomitant]
     Active Substance: ESOMEPRAZOLE MAGNESIUM

REACTIONS (3)
  - Vomiting [Unknown]
  - Gastroenteritis viral [Unknown]
  - Diarrhoea [Unknown]

NARRATIVE: CASE EVENT DATE: 20250303
